FAERS Safety Report 23184021 (Version 1)
Quarter: 2023Q4

REPORT INFORMATION
  Report Type: Spontaneous
  Country: US (occurrence: US)
  Receive Date: 20231115
  Receipt Date: 20231115
  Transmission Date: 20240109
  Serious: No
  Sender: FDA-Public Use
  Company Number: US-AMGEN-USASP2023200601

PATIENT
  Age: 8 Year
  Sex: Female

DRUGS (2)
  1. NPLATE [Suspect]
     Active Substance: ROMIPLOSTIM
     Indication: Immune thrombocytopenia
     Dosage: THAT WEEK 0.16ML OR 80MCG, QWK
     Route: 065
     Dates: start: 20230814
  2. NPLATE [Suspect]
     Active Substance: ROMIPLOSTIM
     Indication: Platelet disorder

REACTIONS (1)
  - Platelet count decreased [Unknown]

NARRATIVE: CASE EVENT DATE: 20231030
